FAERS Safety Report 8332865-5 (Version None)
Quarter: 2012Q2

REPORT INFORMATION
  Report Type: 
  Country: None (occurrence: None)
  Receive Date: 20120503
  Receipt Date: 20120424
  Transmission Date: 20120825
  Serious: Yes (Death)
  Sender: FDA-Public Use
  Company Number: US-BAYER-2012-018860

PATIENT
  Age: 14 Year
  Sex: Female
  Weight: 90.703 kg

DRUGS (19)
  1. SINGULAIR [Concomitant]
  2. CONCERTA [Concomitant]
     Dosage: 27 MG, QD
  3. PHENERGAN [Concomitant]
     Dosage: 25 MG, EVERY 6 HOURS
     Route: 048
  4. DOPAMINE HCL [Concomitant]
  5. ADVAIR DISKUS 100/50 [Concomitant]
  6. MOBIC [Concomitant]
     Dosage: 7.5 MG, BID
  7. VICODIN [Concomitant]
     Dosage: 5-500 MG EVERY 4-6 HOURS
  8. MAXALT [Concomitant]
     Dosage: 5 MG, PRN
  9. ATROPINE [Concomitant]
  10. EPINEPHRINE [Concomitant]
  11. CONCERTA [Concomitant]
  12. SOLU-MEDROL [Concomitant]
  13. BICARBONAT [Concomitant]
  14. CALCIUM CHLORIDE [Concomitant]
  15. AMITRIPTYLINE HCL [Concomitant]
     Dosage: 50 MG, QD
  16. ADDERALL 5 [Concomitant]
  17. FLONASE [Concomitant]
     Dosage: 50 MCG PER DAY
  18. PROVENTIL [Concomitant]
     Dosage: 90 MCG 4 X PER DAY
     Route: 048
  19. DROSPIRENONE AND ETHINYL ESTRADIOL [Suspect]
     Indication: MENSTRUATION NORMAL
     Dosage: UNK
     Dates: start: 20100101, end: 20100501

REACTIONS (5)
  - DEEP VEIN THROMBOSIS [None]
  - PULMONARY EMBOLISM [None]
  - EMOTIONAL DISTRESS [None]
  - PAIN [None]
  - ANXIETY [None]
